FAERS Safety Report 6218487-0 (Version None)
Quarter: 2009Q2

REPORT INFORMATION
  Report Type: 
  Country: None (occurrence: None)
  Receive Date: 20090608
  Receipt Date: 20090602
  Transmission Date: 20091009
  Serious: Yes (Hospitalization)
  Sender: FDA-Public Use
  Company Number: B0576956A

PATIENT
  Age: 40 Year
  Sex: Male

DRUGS (7)
  1. AUGMENTIN '125' [Suspect]
     Indication: NODULE ON EXTREMITY
     Route: 048
     Dates: start: 20090316, end: 20090321
  2. AMOXICILLIN TRIHYDRATE [Suspect]
     Indication: TONSILLITIS
     Route: 048
     Dates: start: 20090221, end: 20090226
  3. BICLAR [Suspect]
     Indication: GENITAL ULCERATION
     Route: 048
     Dates: start: 20090310, end: 20090313
  4. TARIVID (OFLOXACIN) [Suspect]
     Indication: GENITAL ULCERATION
     Route: 048
     Dates: start: 20090310, end: 20090313
  5. DOXYCYCLINE [Suspect]
     Route: 048
     Dates: start: 20090313, end: 20090323
  6. AZITHROMYCIN [Suspect]
     Route: 048
     Dates: start: 20090313, end: 20090313
  7. EXTENCILLINE [Suspect]
     Indication: SYPHILIS
     Route: 048
     Dates: start: 20090316, end: 20090330

REACTIONS (16)
  - CELL DEATH [None]
  - CHEILITIS [None]
  - CHOLESTASIS [None]
  - DRUG RASH WITH EOSINOPHILIA AND SYSTEMIC SYMPTOMS [None]
  - EOSINOPHILIA [None]
  - FACE OEDEMA [None]
  - GENERAL PHYSICAL HEALTH DETERIORATION [None]
  - GENERALISED ERYTHEMA [None]
  - HYPERTHERMIA [None]
  - LYMPHADENOPATHY [None]
  - PRURITUS [None]
  - PURPURA [None]
  - RASH MACULOVESICULAR [None]
  - RASH PUSTULAR [None]
  - SKIN EXFOLIATION [None]
  - SKIN LESION [None]
